FAERS Safety Report 19022219 (Version 2)
Quarter: 2021Q1

REPORT INFORMATION
  Report Type: Spontaneous
  Country: IL (occurrence: IL)
  Receive Date: 20210317
  Receipt Date: 20210319
  Transmission Date: 20210420
  Serious: Yes (Hospitalization, Other)
  Sender: FDA-Public Use
  Company Number: IL-SA-2021SA077885

PATIENT
  Age: 76 Year
  Sex: Male

DRUGS (9)
  1. ATORVASTATIN [Concomitant]
     Active Substance: ATORVASTATIN
  2. ACETYLSALICYLIC ACID [Suspect]
     Active Substance: ASPIRIN
  3. VALSARTAN. [Concomitant]
     Active Substance: VALSARTAN
  4. VALSARTAN. [Concomitant]
     Active Substance: VALSARTAN
  5. ACETYLSALICYLIC ACID [Suspect]
     Active Substance: ASPIRIN
     Indication: ANTIPLATELET THERAPY
     Dosage: 100 MG, QD
  6. BISOPROLOL [Concomitant]
     Active Substance: BISOPROLOL
  7. CLOPIDOGREL BISULFATE. [Suspect]
     Active Substance: CLOPIDOGREL BISULFATE
     Indication: ANTIPLATELET THERAPY
     Dosage: 75 MG, QD
  8. BISOPROLOL [Concomitant]
     Active Substance: BISOPROLOL
  9. ATORVASTATIN [Concomitant]
     Active Substance: ATORVASTATIN

REACTIONS (14)
  - Thrombocytopenia [Recovered/Resolved]
  - Schistocytosis [Recovered/Resolved]
  - Chest wall mass [Recovered/Resolved]
  - Fatigue [Recovered/Resolved]
  - Disseminated intravascular coagulation [Recovered/Resolved]
  - Serum ferritin increased [Recovered/Resolved]
  - Tachycardia [Recovered/Resolved]
  - Subcutaneous haematoma [Recovered/Resolved]
  - Stent-graft endoleak [Recovered/Resolved]
  - Blood fibrinogen decreased [Recovered/Resolved]
  - Pallor [Recovered/Resolved]
  - Thrombosis [Recovered/Resolved]
  - Anaemia [Recovered/Resolved]
  - Chest wall haematoma [Recovered/Resolved]
